FAERS Safety Report 5120002-X (Version None)
Quarter: 2006Q3

REPORT INFORMATION
  Report Type: 
  Country: None (occurrence: None)
  Receive Date: 20060929
  Receipt Date: 20060912
  Transmission Date: 20061208
  Serious: Yes (Other)
  Sender: FDA-Public Use
  Company Number: S06-GER-03827-01

PATIENT
  Age: 60 Year
  Sex: Female

DRUGS (9)
  1. MEMANTINE HCL [Suspect]
  2. PALLADONE [Concomitant]
  3. ARCOXIA [Concomitant]
  4. LYRICA [Concomitant]
  5. CLOPIDOGREL BISULFATE [Concomitant]
  6. TORSEMIDE [Concomitant]
  7. ENALAPRIL MALEATE [Concomitant]
  8. CORVATON [Concomitant]
  9. NEXIUM (MOLSIDOMINE) [Concomitant]

REACTIONS (2)
  - DISEASE RECURRENCE [None]
  - HYPERTENSIVE CRISIS [None]
